FAERS Safety Report 6198315-2 (Version None)
Quarter: 2009Q2

REPORT INFORMATION
  Report Type: 
  Country: None (occurrence: None)
  Receive Date: 20090518
  Receipt Date: 20090403
  Transmission Date: 20091009
  Serious: Yes (Other)
  Sender: FDA-Public Use
  Company Number: WAES 0904USA01017

PATIENT
  Sex: 0

DRUGS (1)
  1. ISENTRESS [Suspect]
     Dates: end: 20081207

REACTIONS (1)
  - HEPATIC ENZYME INCREASED [None]
